FAERS Safety Report 18106397 (Version 1)
Quarter: 2020Q3

REPORT INFORMATION
  Report Type: Report from Study
  Country: AU (occurrence: AU)
  Receive Date: 20200803
  Receipt Date: 20200803
  Transmission Date: 20201103
  Serious: Yes (Hospitalization)
  Sender: FDA-Public Use
  Company Number: AU-TOLMAR, INC.-19AU000022

PATIENT
  Sex: Male

DRUGS (17)
  1. SPIRIVA [Concomitant]
     Active Substance: TIOTROPIUM BROMIDE MONOHYDRATE
  2. EUTROXSIG [Concomitant]
     Active Substance: LEVOTHYROXINE SODIUM
  3. OXYCODONE [Concomitant]
     Active Substance: OXYCODONE
  4. ELIGARD [Suspect]
     Active Substance: LEUPROLIDE ACETATE
     Indication: PROSTATE CANCER
     Dosage: 45 MG, EVERY 6 MONTHS
     Route: 065
     Dates: start: 20190422
  5. RANITIDINE. [Concomitant]
     Active Substance: RANITIDINE
  6. SYMBICORT [Concomitant]
     Active Substance: BUDESONIDE\FORMOTEROL FUMARATE DIHYDRATE
  7. CEFUROXIME. [Concomitant]
     Active Substance: CEFUROXIME
  8. ATORVASTATIN [Concomitant]
     Active Substance: ATORVASTATIN
  9. BISOLVON [Concomitant]
     Active Substance: BROMHEXINE HYDROCHLORIDE
  10. FRUSEMIDE [FUROSEMIDE SODIUM] [Concomitant]
  11. FUNGILIN [Concomitant]
     Active Substance: AMPHOTERICIN B
  12. SALBUTAMOL [Concomitant]
     Active Substance: ALBUTEROL
  13. TARGIN [Concomitant]
     Active Substance: NALOXONE HYDROCHLORIDE\OXYCODONE HYDROCHLORIDE
  14. IPRATROPIUM [Concomitant]
     Active Substance: IPRATROPIUM
  15. ASPIRIN. [Concomitant]
     Active Substance: ASPIRIN
  16. ESOMEPRAZOLE. [Concomitant]
     Active Substance: ESOMEPRAZOLE MAGNESIUM
  17. PREGABALIN. [Concomitant]
     Active Substance: PREGABALIN

REACTIONS (1)
  - Obstructive airways disorder [Not Recovered/Not Resolved]
